FAERS Safety Report 8053410-8 (Version None)
Quarter: 2012Q1

REPORT INFORMATION
  Report Type: 
  Country: None (occurrence: None)
  Receive Date: 20120118
  Receipt Date: 20120113
  Transmission Date: 20120608
  Serious: Yes (Hospitalization)
  Sender: FDA-Public Use
  Company Number: US-GLAXOSMITHKLINE-A0946795A

PATIENT
  Age: 58 Year
  Sex: Female

DRUGS (3)
  1. FLONASE [Suspect]
     Indication: RHINITIS ALLERGIC
     Dosage: 2SPR PER DAY
     Route: 045
     Dates: start: 20090101
  2. THYROID TAB [Concomitant]
  3. ALPRAZOLAM [Concomitant]

REACTIONS (4)
  - TONSILLITIS [None]
  - PYREXIA [None]
  - FATIGUE [None]
  - OXYGEN SATURATION DECREASED [None]
